FAERS Safety Report 5043628-0 (Version None)
Quarter: 2006Q2

REPORT INFORMATION
  Report Type: 
  Country: None (occurrence: None)
  Receive Date: 20060628
  Receipt Date: 20060606
  Transmission Date: 20061013
  Serious: Yes (Other)
  Sender: FDA-Public Use
  Company Number: US200606001624

PATIENT
  Age: 14 Year
  Sex: Male
  Weight: 52.7 kg

DRUGS (5)
  1. SOMATROPIN (SOMATROPIN) [Suspect]
     Dosage: 24 MG, EACH EVENING, SUBCUTANEOUS
     Route: 058
     Dates: start: 20060407, end: 20060528
  2. RISPERDAL [Concomitant]
  3. LUVOX [Concomitant]
  4. TOPAMAX [Concomitant]
  5. STRATTERA [Concomitant]

REACTIONS (1)
  - AGGRESSION [None]
